FAERS Safety Report 7480385-2 (Version None)
Quarter: 2011Q2

REPORT INFORMATION
  Report Type: 
  Country: None (occurrence: None)
  Receive Date: 20110504
  Receipt Date: 20110419
  Transmission Date: 20111010
  Serious: Yes (Other)
  Sender: FDA-Public Use
  Company Number: 2008S1008117

PATIENT
  Age: 55 Year
  Sex: Female
  Weight: 72.5755 kg

DRUGS (12)
  1. DIOVAN HCT [Concomitant]
  2. PHOSPHOSODA FLAVOR NOT SPECIFIED [Suspect]
     Indication: COLONOSCOPY
     Dosage: PO
     Route: 048
     Dates: start: 20070523, end: 20070523
  3. VITAMIN B COMPLEX WITH C [Concomitant]
  4. CENTRUM SILVER [Concomitant]
  5. ZOCOR [Concomitant]
  6. SYNTHROID [Concomitant]
  7. FENTANYL [Concomitant]
  8. VERSED [Concomitant]
  9. EFFEXOR XR [Concomitant]
  10. HYDROCHLOROTHIAZIDE [Concomitant]
  11. FLUTICASONE PROPIONATE [Concomitant]
  12. ESTRATEST H.S. [Concomitant]

REACTIONS (11)
  - RENAL FAILURE ACUTE [None]
  - ANAEMIA [None]
  - HEADACHE [None]
  - RENAL FAILURE CHRONIC [None]
  - RENAL ARTERY STENOSIS [None]
  - DEHYDRATION [None]
  - HAEMODIALYSIS [None]
  - PROCEDURAL HYPOTENSION [None]
  - RENAL TUBULAR NECROSIS [None]
  - ACUTE PHOSPHATE NEPHROPATHY [None]
  - NEPHROCALCINOSIS [None]
